FAERS Safety Report 12291006 (Version 20)
Quarter: 2021Q4

REPORT INFORMATION
  Report Type: Spontaneous
  Country: US (occurrence: US)
  Receive Date: 20160421
  Receipt Date: 20211004
  Transmission Date: 20220303
  Serious: Yes (Hospitalization, Other)
  Sender: FDA-Public Use
  Company Number: US-PFIZER INC-2016172335

PATIENT
  Age: 68 Year
  Sex: Male
  Weight: 115 kg

DRUGS (9)
  1. LYRICA [Suspect]
     Active Substance: PREGABALIN
     Indication: Polyneuropathy
     Dosage: 100 MG, 1 CAPSULE (100 MG) THREE TIMES A DAY
     Route: 048
     Dates: start: 20160216, end: 2016
  2. LYRICA [Suspect]
     Active Substance: PREGABALIN
     Indication: Diabetic neuropathy
     Dosage: 100 MG, 3 TIMES A DAY
     Route: 048
     Dates: start: 20160420, end: 2016
  3. LYRICA [Suspect]
     Active Substance: PREGABALIN
     Indication: Neuropathy peripheral
     Dosage: 100 MG, THREE TIMES A DAY
     Route: 048
     Dates: start: 20161123
  4. LYRICA [Suspect]
     Active Substance: PREGABALIN
     Indication: Lumbar radiculopathy
     Dosage: 100 MG, THREE TIMES A DAY
     Route: 048
     Dates: start: 20170404
  5. LYRICA [Suspect]
     Active Substance: PREGABALIN
     Dosage: 200 MG, THREE TIMES A DAY (THREE TIMES A DAY AT 6 AM, 2 PM AND 10 PM)
     Route: 048
     Dates: start: 2016
  6. LYRICA [Suspect]
     Active Substance: PREGABALIN
     Dosage: 270 MG, UNK
  7. LYRICA [Suspect]
     Active Substance: PREGABALIN
     Dosage: 200 MG, THREE TIMES DAILY (STRENGTH: 200 MG; TAKE 1 CAPSULE BY MOUTH THREE TIMES DAILY)
     Route: 048
  8. MOBIC [Concomitant]
     Active Substance: MELOXICAM
     Dosage: UNK, DAILY
  9. AMLODIPINE [Concomitant]
     Active Substance: AMLODIPINE BESYLATE
     Indication: Blood pressure abnormal
     Dosage: 10 MG, DAILY

REACTIONS (4)
  - Pain in extremity [Not Recovered/Not Resolved]
  - Product dispensing issue [Unknown]
  - Weight decreased [Unknown]
  - Paraesthesia [Unknown]
